FAERS Safety Report 14156175 (Version 2)
Quarter: 2017Q4

REPORT INFORMATION
  Report Type: Spontaneous
  Country: US (occurrence: US)
  Receive Date: 20171103
  Receipt Date: 20171227
  Transmission Date: 20180321
  Serious: Yes (Hospitalization, Other)
  Sender: FDA-Public Use
  Company Number: PHEH2017US034782

PATIENT
  Age: 61 Year
  Sex: Male
  Weight: 172.7 kg

DRUGS (8)
  1. ZOSYN [Concomitant]
     Active Substance: PIPERACILLIN SODIUM\TAZOBACTAM SODIUM
     Indication: FEBRILE NEUTROPENIA
     Dosage: 4.5 G, Q8H
     Route: 042
     Dates: start: 20171005, end: 20171012
  2. VELCADE [Suspect]
     Active Substance: BORTEZOMIB
     Indication: PRODUCT USED FOR UNKNOWN INDICATION
     Route: 065
  3. CEFEPIME [Concomitant]
     Active Substance: CEFEPIME HYDROCHLORIDE
     Indication: FEBRILE NEUTROPENIA
     Dosage: 2 G, Q8H
     Route: 042
     Dates: start: 20171012, end: 20171016
  4. MICAFUNGIN [Concomitant]
     Active Substance: MICAFUNGIN
     Indication: FEBRILE NEUTROPENIA
     Dosage: 100 MG, QD
     Route: 042
     Dates: start: 20171001, end: 20171016
  5. RYDAPT [Suspect]
     Active Substance: MIDOSTAURIN
     Indication: ACUTE MYELOID LEUKAEMIA
     Dosage: 50 MG, BID
     Route: 048
     Dates: start: 20170918, end: 20170921
  6. RYDAPT [Suspect]
     Active Substance: MIDOSTAURIN
     Dosage: 50 MG, BID
     Route: 048
     Dates: start: 20171002, end: 20171010
  7. VIDAZA [Concomitant]
     Active Substance: AZACITIDINE
     Indication: ACUTE MYELOID LEUKAEMIA
     Dosage: 160 MG, UNK
     Route: 042
     Dates: start: 20170925, end: 20170929
  8. VALTREX [Concomitant]
     Active Substance: VALACYCLOVIR HYDROCHLORIDE
     Indication: FEBRILE NEUTROPENIA
     Dosage: 500 MG, BID
     Route: 048
     Dates: start: 20170925, end: 20171016

REACTIONS (11)
  - Jaundice [Unknown]
  - Colitis [Unknown]
  - Aspartate aminotransferase increased [Recovered/Resolved]
  - Diarrhoea [Recovered/Resolved]
  - Chromaturia [Unknown]
  - Blood bilirubin increased [Recovered/Resolved]
  - Alanine aminotransferase increased [Recovered/Resolved]
  - Oedema peripheral [Unknown]
  - Blood alkaline phosphatase increased [Recovered/Resolved]
  - Pyrexia [Unknown]
  - Abdominal distension [Unknown]

NARRATIVE: CASE EVENT DATE: 20170930
